FAERS Safety Report 18383121 (Version 3)
Quarter: 2020Q4

REPORT INFORMATION
  Report Type: Report from Study
  Country: CL (occurrence: CL)
  Receive Date: 20201014
  Receipt Date: 20201109
  Transmission Date: 20210114
  Serious: Yes (Other)
  Sender: FDA-Public Use
  Company Number: CL-JNJFOC-20201020435

PATIENT
  Age: 66 Year
  Sex: Male

DRUGS (1)
  1. VENTAVIS [Suspect]
     Active Substance: ILOPROST
     Indication: PULMONARY HYPERTENSION
     Dosage: UNK
     Route: 065
     Dates: start: 20150828

REACTIONS (8)
  - Drug ineffective [Unknown]
  - Drug dose omission by device [Unknown]
  - Presyncope [Not Recovered/Not Resolved]
  - Right ventricular enlargement [Not Recovered/Not Resolved]
  - Lung transplant [Unknown]
  - Cardiac failure [Not Recovered/Not Resolved]
  - Cyanosis [Not Recovered/Not Resolved]
  - Pulmonary hypertensive crisis [Not Recovered/Not Resolved]

NARRATIVE: CASE EVENT DATE: 20200929
